FAERS Safety Report 16957850 (Version 1)
Quarter: 2019Q4

REPORT INFORMATION
  Report Type: Spontaneous
  Country: US (occurrence: US)
  Receive Date: 20190906
  Receipt Date: 20190906
  Transmission Date: 20200122
  Serious: Yes (Other)
  Sender: FDA-Public Use
  Company Number: None

PATIENT
  Age: 41 Year
  Sex: Female
  Weight: 104.33 kg

DRUGS (1)
  1. GLATIRAMER ACETATE 40MG/ML [Suspect]
     Active Substance: GLATIRAMER ACETATE
     Indication: MULTIPLE SCLEROSIS
     Route: 058
     Dates: start: 201901

REACTIONS (7)
  - Paraesthesia [None]
  - Speech disorder [None]
  - Chills [None]
  - Disturbance in attention [None]
  - Arthralgia [None]
  - Pain [None]
  - Multiple sclerosis [None]

NARRATIVE: CASE EVENT DATE: 20190401
